FAERS Safety Report 6258671-3 (Version None)
Quarter: 2009Q3

REPORT INFORMATION
  Report Type: 
  Country: None (occurrence: None)
  Receive Date: 20090702
  Receipt Date: 20090618
  Transmission Date: 20100115
  Serious: Yes (Hospitalization, Other)
  Sender: FDA-Public Use
  Company Number: 2008-183474-NL

PATIENT
  Age: 29 Year
  Sex: Female
  Weight: 74.8 kg

DRUGS (2)
  1. NUVARING [Suspect]
     Dates: start: 20040113, end: 20080101
  2. ADVIL LIQUI-GELS [Concomitant]

REACTIONS (21)
  - ANXIETY [None]
  - DEEP VEIN THROMBOSIS [None]
  - DEPRESSION [None]
  - DIASTOLIC DYSFUNCTION [None]
  - DIZZINESS [None]
  - DIZZINESS POSTURAL [None]
  - DYSPNOEA EXERTIONAL [None]
  - HYPOTENSION [None]
  - HYPOXIA [None]
  - INJECTION SITE PAIN [None]
  - LEUKOCYTOSIS [None]
  - MITRAL VALVE PROLAPSE [None]
  - NAUSEA [None]
  - OEDEMA PERIPHERAL [None]
  - PLEURITIC PAIN [None]
  - PULMONARY EMBOLISM [None]
  - RIGHT ATRIAL DILATATION [None]
  - RIGHT VENTRICULAR FAILURE [None]
  - TACHYCARDIA [None]
  - THROMBOCYTOSIS [None]
  - VOMITING [None]
